FAERS Safety Report 24114745 (Version 1)
Quarter: 2024Q3

REPORT INFORMATION
  Report Type: Spontaneous
  Country: IN (occurrence: IN)
  Receive Date: 20240721
  Receipt Date: 20240721
  Transmission Date: 20241017
  Serious: Yes (Death, Hospitalization)
  Sender: Steriscience PTE
  Company Number: IN-STERISCIENCE B.V.-2024-ST-001029

PATIENT
  Age: 62 Year
  Sex: Female

DRUGS (4)
  1. MEROPENEM [Suspect]
     Active Substance: MEROPENEM
     Indication: Pseudoaneurysm infection
     Dosage: 1 GRAM, BID
     Route: 065
  2. PIPERACILLIN SODIUM\TAZOBACTAM SODIUM [Suspect]
     Active Substance: PIPERACILLIN SODIUM\TAZOBACTAM SODIUM
     Indication: Pseudoaneurysm infection
     Dosage: 4.5 GRAM, BID
     Route: 042
  3. AZTREONAM [Suspect]
     Active Substance: AZTREONAM
     Indication: Pseudoaneurysm infection
     Dosage: 1 GRAM, BID
     Route: 042
  4. OFLOXACIN [Suspect]
     Active Substance: OFLOXACIN
     Indication: Pseudoaneurysm infection
     Dosage: 100 MILLILITER, BID
     Route: 042

REACTIONS (1)
  - Drug ineffective for unapproved indication [Fatal]
